FAERS Safety Report 23056353 (Version 1)
Quarter: 2023Q4

REPORT INFORMATION
  Report Type: Spontaneous
  Country: US (occurrence: US)
  Receive Date: 20231011
  Receipt Date: 20231011
  Transmission Date: 20240109
  Serious: Yes (Hospitalization)
  Sender: FDA-Public Use
  Company Number: US-PPDUS-2023ST003484

PATIENT
  Age: 56 Year
  Sex: Female

DRUGS (11)
  1. ORSERDU [Suspect]
     Active Substance: ELACESTRANT
     Indication: Product used for unknown indication
     Route: 048
     Dates: start: 20230923, end: 20230925
  2. METFORMIN HYDROCHLORIDE [Concomitant]
     Active Substance: METFORMIN HYDROCHLORIDE
     Indication: Product used for unknown indication
     Route: 048
  3. CARVEDILOL [Concomitant]
     Active Substance: CARVEDILOL
     Indication: Product used for unknown indication
     Route: 048
  4. PREGABALIN [Concomitant]
     Active Substance: PREGABALIN
     Indication: Product used for unknown indication
     Route: 048
  5. PREGABALIN [Concomitant]
     Active Substance: PREGABALIN
     Route: 048
  6. VITAMINS [Concomitant]
     Active Substance: VITAMINS
     Indication: Product used for unknown indication
     Dosage: MULTIVITAMIN WOMEN
     Route: 048
  7. VITAMIN B [Concomitant]
     Active Substance: VITAMIN B
     Indication: Product used for unknown indication
     Route: 048
  8. SB Oyster Shell  Calcium [Concomitant]
     Indication: Product used for unknown indication
     Route: 048
  9. VITAMIN D3 [Concomitant]
     Active Substance: CHOLECALCIFEROL
     Indication: Product used for unknown indication
     Dosage: 50 MCG
     Route: 048
  10. Sambucus Elderberry [Concomitant]
     Indication: Product used for unknown indication
     Route: 048
  11. turkey tail [Concomitant]
     Indication: Product used for unknown indication
     Dosage: TURKEY TAIL HERBAL SUPP

REACTIONS (3)
  - Enteral nutrition [Not Recovered/Not Resolved]
  - Fall [Recovering/Resolving]
  - Dizziness [Not Recovered/Not Resolved]

NARRATIVE: CASE EVENT DATE: 20230924
